FAERS Safety Report 6268745-9 (Version None)
Quarter: 2009Q3

REPORT INFORMATION
  Report Type: 
  Country: None (occurrence: None)
  Receive Date: 20090713
  Receipt Date: 20090713
  Transmission Date: 20100115
  Serious: Yes (Hospitalization)
  Sender: FDA-Public Use
  Company Number: None

PATIENT
  Age: 63 Year
  Sex: Female
  Weight: 68.0396 kg

DRUGS (3)
  1. NEXIUM [Suspect]
     Indication: COLITIS
     Dosage: ONE CAPSULE DAILY
     Dates: start: 20080415, end: 20090521
  2. NEXIUM [Suspect]
     Indication: GASTROOESOPHAGEAL REFLUX DISEASE
     Dosage: ONE CAPSULE DAILY
     Dates: start: 20080415, end: 20090521
  3. NEXIUM [Suspect]
     Indication: IRRITABLE BOWEL SYNDROME
     Dosage: ONE CAPSULE DAILY
     Dates: start: 20080415, end: 20090521

REACTIONS (5)
  - AMNESIA [None]
  - DYSPNOEA [None]
  - LOSS OF CONSCIOUSNESS [None]
  - NAUSEA [None]
  - SUPRAVENTRICULAR TACHYCARDIA [None]
